FAERS Safety Report 7269379-X (Version None)
Quarter: 2011Q1

REPORT INFORMATION
  Report Type: 
  Country: None (occurrence: None)
  Receive Date: 20110119
  Receipt Date: 20110112
  Transmission Date: 20110831
  Serious: Yes (Other)
  Sender: FDA-Public Use
  Company Number: 2010022661

PATIENT
  Sex: Female

DRUGS (1)
  1. VIVAGLOBIN [Suspect]
     Indication: PRIMARY IMMUNODEFICIENCY SYNDROME
     Dosage: 9.6 GM/WEEK IN 4 SITES ROTATING IN LEGS AND ABDOMEN SUBCUTANEOUS
     Route: 058
     Dates: start: 20100101

REACTIONS (1)
  - GASTRIC HAEMORRHAGE [None]
